FAERS Safety Report 25394400 (Version 1)
Quarter: 2025Q2

REPORT INFORMATION
  Report Type: Spontaneous
  Country: CN (occurrence: CN)
  Receive Date: 20250604
  Receipt Date: 20250604
  Transmission Date: 20250716
  Serious: Yes (Other)
  Sender: ALKEM
  Company Number: CN-ALKEM LABORATORIES LIMITED-CN-ALKEM-2025-05751

PATIENT
  Age: 19 Year
  Sex: Male
  Weight: 64.9 kg

DRUGS (2)
  1. RILUZOLE [Suspect]
     Active Substance: RILUZOLE
     Indication: Product used for unknown indication
     Route: 048
  2. RILUZOLE [Suspect]
     Active Substance: RILUZOLE
     Route: 048

REACTIONS (2)
  - Electrocardiogram QT prolonged [Unknown]
  - Bilirubin conjugated increased [Unknown]
